FAERS Safety Report 7481632-3 (Version None)
Quarter: 2011Q2

REPORT INFORMATION
  Report Type: 
  Country: None (occurrence: None)
  Receive Date: 20110516
  Receipt Date: 20110509
  Transmission Date: 20111010
  Serious: Yes (Other)
  Sender: FDA-Public Use
  Company Number: US-AMGEN-USASP2011018536

PATIENT
  Age: 11 Year
  Sex: Female
  Weight: 56.6 kg

DRUGS (1)
  1. NPLATE [Suspect]
     Indication: IDIOPATHIC THROMBOCYTOPENIC PURPURA
     Dosage: 9 A?G/KG, QWK
     Route: 058
     Dates: start: 20081203, end: 20110224

REACTIONS (1)
  - THROMBOCYTOPENIA [None]
